FAERS Safety Report 22640608 (Version 1)
Quarter: 2023Q2

REPORT INFORMATION
  Report Type: Spontaneous
  Country: US (occurrence: None)
  Receive Date: 20230623
  Receipt Date: 20230623
  Transmission Date: 20230721
  Serious: Yes (Hospitalization)
  Sender: FDA-Public Use
  Company Number: None

PATIENT
  Age: 77 Year
  Sex: Male

DRUGS (15)
  1. CAPECITABINE [Suspect]
     Active Substance: CAPECITABINE
     Indication: Colon cancer
     Dosage: OTHER QUANTITY : 3 TAM,3TPM;?FREQUENCY : DAILY;?OTHER ROUTE : PO D-1-14/21D CYCLE;?
     Route: 050
  2. AMLODIPINE [Concomitant]
     Active Substance: AMLODIPINE BESYLATE
  3. ASPIRIN [Concomitant]
     Active Substance: ASPIRIN
  4. LIPITOR [Concomitant]
     Active Substance: ATORVASTATIN CALCIUM
  5. COREG [Concomitant]
     Active Substance: CARVEDILOL
  6. CILOSTAZOL [Concomitant]
     Active Substance: CILOSTAZOL
  7. ELIQUIS [Concomitant]
     Active Substance: APIXABAN
  8. FERROUS [Concomitant]
  9. LEVEMIR [Concomitant]
     Active Substance: INSULIN DETEMIR
  10. LISINOPRIL [Concomitant]
     Active Substance: LISINOPRIL
  11. LOPERAMIDE [Concomitant]
     Active Substance: LOPERAMIDE
  12. NOVOLOG [Concomitant]
     Active Substance: INSULIN ASPART
  13. OMEPRAZOLE [Concomitant]
     Active Substance: OMEPRAZOLE
  14. PROCHLORPERAZINE [Concomitant]
     Active Substance: PROCHLORPERAZINE
  15. TAMSULOSIN [Concomitant]
     Active Substance: TAMSULOSIN

REACTIONS (1)
  - Ulcer haemorrhage [None]

NARRATIVE: CASE EVENT DATE: 20230610
